FAERS Safety Report 19666376 (Version 1)
Quarter: 2021Q3

REPORT INFORMATION
  Report Type: Spontaneous
  Country: US (occurrence: US)
  Receive Date: 20210806
  Receipt Date: 20210806
  Transmission Date: 20211014
  Serious: No
  Sender: FDA-Public Use
  Company Number: US-JNJFOC-20210748348

PATIENT
  Age: 33 Year
  Sex: Male

DRUGS (1)
  1. MENS ROGAINE EXTRA STRENGTH [Suspect]
     Active Substance: MINOXIDIL
     Indication: HAIR GROWTH ABNORMAL
     Dosage: DOSE AND FREQUENCY: 1 ML AND TWICE DAILY
     Route: 061
     Dates: start: 20210707

REACTIONS (4)
  - Application site erythema [Not Recovered/Not Resolved]
  - Incorrect dose administered [Unknown]
  - Application site pain [Not Recovered/Not Resolved]
  - Application site irritation [Recovered/Resolved]

NARRATIVE: CASE EVENT DATE: 20210707
